FAERS Safety Report 8263095-3 (Version None)
Quarter: 2012Q2

REPORT INFORMATION
  Report Type: 
  Country: None (occurrence: None)
  Receive Date: 20120405
  Receipt Date: 20120327
  Transmission Date: 20120825
  Serious: Yes (Death, Hospitalization)
  Sender: FDA-Public Use
  Company Number: AU-ACTELION-A-CH2012-62296

PATIENT
  Sex: Female

DRUGS (8)
  1. TRACLEER [Suspect]
     Dosage: 62.5 MG, BID
     Route: 048
     Dates: start: 20061107, end: 20061221
  2. PREDNISOLONE [Concomitant]
     Dosage: UNK
     Dates: start: 20060101
  3. MULTI-VITAMIN [Concomitant]
     Dosage: UNK
     Dates: start: 20060101
  4. PRILOSEC [Concomitant]
     Dosage: UNK
  5. FISH OIL [Concomitant]
     Dosage: UNK
     Dates: start: 20060101
  6. TRACLEER [Suspect]
     Indication: PULMONARY ARTERIAL HYPERTENSION
     Dosage: 125 MG, BID
     Route: 048
     Dates: start: 20061221, end: 20120326
  7. VITAMIN E [Concomitant]
     Dosage: UNK
     Dates: start: 20060101
  8. FERRO SULFAT [Concomitant]
     Dosage: UNK
     Dates: start: 20060101

REACTIONS (7)
  - PULMONARY OEDEMA [None]
  - PULMONARY ARTERIAL HYPERTENSION [None]
  - LYMPHADENOPATHY [None]
  - PNEUMONIA [None]
  - AORTIC STENOSIS [None]
  - FLUID OVERLOAD [None]
  - DISEASE PROGRESSION [None]
